FAERS Safety Report 7208492-X (Version None)
Quarter: 2011Q1

REPORT INFORMATION
  Report Type: 
  Country: None (occurrence: None)
  Receive Date: 20110104
  Receipt Date: 20101220
  Transmission Date: 20110831
  Serious: Yes (Hospitalization)
  Sender: FDA-Public Use
  Company Number: DE-RANBAXY-2009RR-22388

PATIENT
  Age: 74 Year
  Sex: Female
  Weight: 68 kg

DRUGS (9)
  1. ENALAPRIL [Suspect]
     Indication: RENAL FAILURE
     Dosage: 10 MG, QD
     Route: 048
     Dates: start: 20080401
  2. FALITHROM [Concomitant]
     Indication: TACHYARRHYTHMIA
     Dosage: 1.5 MG, UNK
     Route: 048
  3. BISOPROLOL [Suspect]
     Indication: HYPERTENSION
     Dosage: 5 MG, BID
     Route: 048
  4. TORSEMIDE [Suspect]
     Indication: HYPERTENSION
     Dosage: 10 MG, QD
     Route: 048
     Dates: start: 20080825, end: 20080920
  5. METHOTREXATE [Concomitant]
     Indication: RHEUMATOID ARTHRITIS
     Dosage: 1.5 MG, QD
     Route: 048
     Dates: start: 20080825
  6. XIPAMIDE [Suspect]
     Indication: HYPERTENSION
     Dosage: 20 MG, QD
     Route: 048
     Dates: start: 20080401, end: 20080911
  7. SIMVAHEXAL [Concomitant]
     Indication: PROPHYLAXIS
     Dosage: 20 MG, QD
     Route: 048
     Dates: start: 20030101
  8. PREDNISOLONE [Concomitant]
     Indication: RHEUMATOID ARTHRITIS
     Dosage: 5 MG, QD
     Route: 048
     Dates: start: 20030101
  9. OMEPRAZOL ^STADA^ [Concomitant]
     Indication: GASTRITIS
     Dosage: 20 MG, QD
     Route: 048
     Dates: start: 20030101

REACTIONS (3)
  - DRUG INTERACTION [None]
  - HYPOTENSION [None]
  - DEHYDRATION [None]
